FAERS Safety Report 4553394-0 (Version None)
Quarter: 2005Q1

REPORT INFORMATION
  Report Type: 
  Country: None (occurrence: None)
  Receive Date: 20050112
  Receipt Date: 20040106
  Transmission Date: 20050727
  Serious: Yes (Hospitalization)
  Sender: FDA-Public Use
  Company Number: 200510000BYL

PATIENT
  Age: 57 Year
  Sex: Female
  Weight: 34 kg

DRUGS (5)
  1. ASPIRIN [Suspect]
     Indication: CEREBRAL INFARCTION
     Dosage: 100 MG, QD, ORAL
     Route: 048
     Dates: start: 20041213, end: 20041226
  2. AMLODIN [Concomitant]
  3. BLOPRESS [Concomitant]
  4. CALTAN [Concomitant]
  5. ALFAROL [Concomitant]

REACTIONS (3)
  - LUNG DISORDER [None]
  - PNEUMONIA [None]
  - PULMONARY OEDEMA [None]
